FAERS Safety Report 22363703 (Version 2)
Quarter: 2023Q4

REPORT INFORMATION
  Report Type: Spontaneous
  Country: CA (occurrence: CA)
  Receive Date: 20230525
  Receipt Date: 20231025
  Transmission Date: 20240110
  Serious: Yes (Other)
  Sender: FDA-Public Use
  Company Number: CA-TEVA-2023-CA-2889140

PATIENT
  Age: 77 Year
  Sex: Male

DRUGS (52)
  1. CARBIDOPA\LEVODOPA [Suspect]
     Active Substance: CARBIDOPA\LEVODOPA
     Indication: Tremor
     Route: 065
  2. CARBIDOPA\LEVODOPA [Suspect]
     Active Substance: CARBIDOPA\LEVODOPA
     Indication: Dysphonia
     Route: 065
  3. CARBIDOPA\LEVODOPA [Suspect]
     Active Substance: CARBIDOPA\LEVODOPA
     Route: 065
  4. CLONAZEPAM [Suspect]
     Active Substance: CLONAZEPAM
     Indication: Parkinsonian rest tremor
     Route: 065
  5. CLONAZEPAM [Suspect]
     Active Substance: CLONAZEPAM
     Indication: Parkinson^s disease
     Route: 065
  6. CLONAZEPAM [Suspect]
     Active Substance: CLONAZEPAM
     Indication: Head titubation
     Route: 065
  7. GABAPENTIN [Suspect]
     Active Substance: GABAPENTIN
     Indication: Parkinsonian rest tremor
     Route: 065
  8. GABAPENTIN [Suspect]
     Active Substance: GABAPENTIN
     Indication: Parkinson^s disease
     Route: 065
  9. GABAPENTIN [Suspect]
     Active Substance: GABAPENTIN
     Indication: Head titubation
     Route: 065
  10. GABAPENTIN [Suspect]
     Active Substance: GABAPENTIN
     Indication: Resting tremor
     Route: 065
  11. PRAMIPEXOLE [Suspect]
     Active Substance: PRAMIPEXOLE
     Indication: Parkinsonian rest tremor
     Route: 065
  12. PRAMIPEXOLE [Suspect]
     Active Substance: PRAMIPEXOLE
     Indication: Parkinson^s disease
     Route: 065
  13. PRAMIPEXOLE [Suspect]
     Active Substance: PRAMIPEXOLE
     Indication: Head titubation
     Route: 065
  14. PRAMIPEXOLE [Suspect]
     Active Substance: PRAMIPEXOLE
     Indication: Resting tremor
     Dosage: 3 MILLIGRAM DAILY;
     Route: 065
  15. PROPRANOLOL HYDROCHLORIDE [Suspect]
     Active Substance: PROPRANOLOL HYDROCHLORIDE
     Indication: Parkinsonian rest tremor
     Route: 065
  16. PROPRANOLOL HYDROCHLORIDE [Suspect]
     Active Substance: PROPRANOLOL HYDROCHLORIDE
     Indication: Parkinson^s disease
     Route: 065
  17. PROPRANOLOL HYDROCHLORIDE [Suspect]
     Active Substance: PROPRANOLOL HYDROCHLORIDE
     Indication: Head titubation
     Route: 065
  18. PROPRANOLOL HYDROCHLORIDE [Suspect]
     Active Substance: PROPRANOLOL HYDROCHLORIDE
     Indication: Resting tremor
     Route: 065
  19. ROPINIROLE HYDROCHLORIDE [Suspect]
     Active Substance: ROPINIROLE HYDROCHLORIDE
     Indication: Parkinsonian rest tremor
     Route: 065
  20. ROPINIROLE HYDROCHLORIDE [Suspect]
     Active Substance: ROPINIROLE HYDROCHLORIDE
     Indication: Parkinson^s disease
     Route: 065
  21. ROPINIROLE HYDROCHLORIDE [Suspect]
     Active Substance: ROPINIROLE HYDROCHLORIDE
     Indication: Head titubation
     Route: 065
  22. ROPINIROLE HYDROCHLORIDE [Suspect]
     Active Substance: ROPINIROLE HYDROCHLORIDE
     Indication: Resting tremor
     Route: 065
  23. SELEGILINE [Suspect]
     Active Substance: SELEGILINE
     Indication: Tremor
     Route: 065
  24. SELEGILINE [Suspect]
     Active Substance: SELEGILINE
     Indication: Dysphonia
     Route: 065
  25. AMANTADINE [Suspect]
     Active Substance: AMANTADINE
     Indication: Parkinsonian rest tremor
     Dosage: 200 MILLIGRAM DAILY;
     Route: 065
  26. AMANTADINE [Suspect]
     Active Substance: AMANTADINE
     Indication: Parkinson^s disease
     Dosage: 200 MILLIGRAM DAILY;
     Route: 065
  27. AMANTADINE [Suspect]
     Active Substance: AMANTADINE
     Indication: Head titubation
     Dosage: 100 MILLIGRAM DAILY;
     Route: 065
  28. AMANTADINE [Suspect]
     Active Substance: AMANTADINE
     Indication: Resting tremor
     Dosage: 200 MILLIGRAM DAILY;
     Route: 065
  29. BENSERAZIDE HYDROCHLORIDE\LEVODOPA [Suspect]
     Active Substance: BENSERAZIDE HYDROCHLORIDE\LEVODOPA
     Indication: Parkinson^s disease
     Route: 065
  30. BENSERAZIDE HYDROCHLORIDE\LEVODOPA [Suspect]
     Active Substance: BENSERAZIDE HYDROCHLORIDE\LEVODOPA
     Indication: Resting tremor
     Route: 065
  31. PRIMIDONE [Suspect]
     Active Substance: PRIMIDONE
     Indication: Parkinsonian rest tremor
     Route: 065
  32. PRIMIDONE [Suspect]
     Active Substance: PRIMIDONE
     Indication: Parkinson^s disease
     Route: 065
  33. PRIMIDONE [Suspect]
     Active Substance: PRIMIDONE
     Indication: Head titubation
     Route: 065
  34. PRIMIDONE [Suspect]
     Active Substance: PRIMIDONE
     Indication: Resting tremor
     Route: 065
  35. PROFENAMINE HYDROCHLORIDE [Suspect]
     Active Substance: PROFENAMINE HYDROCHLORIDE
     Indication: Resting tremor
     Route: 065
  36. PROFENAMINE HYDROCHLORIDE [Suspect]
     Active Substance: PROFENAMINE HYDROCHLORIDE
     Indication: Parkinsonian rest tremor
  37. PROFENAMINE HYDROCHLORIDE [Suspect]
     Active Substance: PROFENAMINE HYDROCHLORIDE
     Indication: Parkinson^s disease
  38. PROFENAMINE HYDROCHLORIDE [Suspect]
     Active Substance: PROFENAMINE HYDROCHLORIDE
     Indication: Head titubation
  39. BENSERAZIDE\LEVODOPA [Suspect]
     Active Substance: BENSERAZIDE\LEVODOPA
     Indication: Resting tremor
     Route: 065
  40. BENSERAZIDE\LEVODOPA [Suspect]
     Active Substance: BENSERAZIDE\LEVODOPA
     Indication: Parkinson^s disease
  41. TRIHEXYPHENIDYL [Suspect]
     Active Substance: TRIHEXYPHENIDYL
     Indication: Resting tremor
     Dosage: 6 MILLIGRAM DAILY;
     Route: 065
  42. TRIHEXYPHENIDYL [Suspect]
     Active Substance: TRIHEXYPHENIDYL
     Indication: Parkinsonian rest tremor
  43. TRIHEXYPHENIDYL [Suspect]
     Active Substance: TRIHEXYPHENIDYL
     Indication: Parkinson^s disease
  44. TRIHEXYPHENIDYL [Suspect]
     Active Substance: TRIHEXYPHENIDYL
     Indication: Head titubation
  45. PROFENAMINE [Concomitant]
     Active Substance: PROFENAMINE
     Indication: Resting tremor
     Route: 065
  46. PROFENAMINE [Concomitant]
     Active Substance: PROFENAMINE
     Indication: Parkinsonian rest tremor
  47. PROFENAMINE [Concomitant]
     Active Substance: PROFENAMINE
     Indication: Parkinson^s disease
  48. PROFENAMINE [Concomitant]
     Active Substance: PROFENAMINE
     Indication: Head titubation
  49. TRIHEXYPHENIDYL [Concomitant]
     Active Substance: TRIHEXYPHENIDYL
     Indication: Resting tremor
     Dosage: 6 MILLIGRAM DAILY;
     Route: 065
  50. TRIHEXYPHENIDYL [Concomitant]
     Active Substance: TRIHEXYPHENIDYL
     Indication: Parkinsonian rest tremor
  51. TRIHEXYPHENIDYL [Concomitant]
     Active Substance: TRIHEXYPHENIDYL
     Indication: Parkinson^s disease
  52. TRIHEXYPHENIDYL [Concomitant]
     Active Substance: TRIHEXYPHENIDYL
     Indication: Head titubation

REACTIONS (7)
  - Dizziness [Unknown]
  - Hallucination [Unknown]
  - Oedema peripheral [Unknown]
  - Somnolence [Unknown]
  - Parkinsonian rest tremor [Unknown]
  - Drug ineffective [Unknown]
  - Off label use [Unknown]
